FAERS Safety Report 20491431 (Version 2)
Quarter: 2022Q1

REPORT INFORMATION
  Report Type: Spontaneous
  Country: GB (occurrence: GB)
  Receive Date: 20220218
  Receipt Date: 20220220
  Transmission Date: 20220423
  Serious: Yes (Other)
  Sender: FDA-Public Use
  Company Number: None

PATIENT
  Sex: Female

DRUGS (1)
  1. LOSEC [Suspect]
     Active Substance: OMEPRAZOLE
     Dosage: UNK (FOR 25-30 YEARS)
     Route: 048

REACTIONS (3)
  - Cholangitis [Not Recovered/Not Resolved]
  - Gastrooesophageal reflux disease [Not Recovered/Not Resolved]
  - Liver disorder [Not Recovered/Not Resolved]
